FAERS Safety Report 11051106 (Version 1)
Quarter: 2015Q2

REPORT INFORMATION
  Report Type: Report from Study
  Country: US (occurrence: US)
  Receive Date: 20150421
  Receipt Date: 20150421
  Transmission Date: 20150821
  Serious: Yes (Hospitalization)
  Sender: FDA-Public Use
  Company Number: US-TEVA-538111USA

PATIENT
  Age: 61 Year
  Sex: Female

DRUGS (1)
  1. COPAXONE [Suspect]
     Active Substance: GLATIRAMER ACETATE
     Indication: MULTIPLE SCLEROSIS

REACTIONS (6)
  - Intussusception [Recovering/Resolving]
  - Abdominal pain [Recovering/Resolving]
  - Appendiceal mucocoele [Recovered/Resolved with Sequelae]
  - Dehydration [Recovering/Resolving]
  - Carcinoid tumour of the appendix [Recovered/Resolved with Sequelae]
  - Benign gastrointestinal neoplasm [Recovering/Resolving]

NARRATIVE: CASE EVENT DATE: 20150125
